FAERS Safety Report 22684917 (Version 3)
Quarter: 2023Q4

REPORT INFORMATION
  Report Type: Report from Study
  Country: US (occurrence: US)
  Receive Date: 20230710
  Receipt Date: 20231004
  Transmission Date: 20240110
  Serious: No
  Sender: FDA-Public Use
  Company Number: US-002147023-NVSC2023US152374

PATIENT
  Sex: Female

DRUGS (2)
  1. COSENTYX [Suspect]
     Active Substance: SECUKINUMAB
     Indication: Psoriasis
     Dosage: UNK
     Route: 065
  2. CLOBETASOL [Suspect]
     Active Substance: CLOBETASOL
     Indication: Psoriasis
     Dosage: UNK
     Route: 065

REACTIONS (9)
  - Psoriasis [Unknown]
  - Guttate psoriasis [Unknown]
  - Pruritus [Unknown]
  - Pain [Unknown]
  - Erythema [Unknown]
  - Skin exfoliation [Unknown]
  - Arthralgia [Unknown]
  - Skin haemorrhage [Unknown]
  - Drug ineffective [Unknown]
